FAERS Safety Report 14336836 (Version 3)
Quarter: 2018Q3

REPORT INFORMATION
  Report Type: Report from Study
  Country: ZA (occurrence: ZA)
  Receive Date: 20171229
  Receipt Date: 20180703
  Transmission Date: 20181010
  Serious: Yes (Other)
  Sender: FDA-Public Use
  Company Number: ZA-SA-2017SA260630

PATIENT
  Age: 42 Year
  Sex: Male
  Weight: 64.6 kg

DRUGS (4)
  1. CIPROBAY [CIPROFLOXACIN] [Concomitant]
     Indication: EAR INFECTION
     Dosage: 500 MG,TID
     Route: 048
     Dates: start: 20171116
  2. EPILIM [Concomitant]
     Active Substance: VALPROATE SODIUM
     Indication: EPILEPSY
     Dosage: 500 MG, QD
     Route: 048
     Dates: start: 2011
  3. RIFAPENTINE [Suspect]
     Active Substance: RIFAPENTINE
     Indication: PULMONARY TUBERCULOSIS
     Dosage: 900 MG,QW
     Route: 048
     Dates: start: 20171030, end: 20171211
  4. ISONIAZID. [Suspect]
     Active Substance: ISONIAZID
     Indication: PULMONARY TUBERCULOSIS
     Dosage: 900 MG,QW
     Route: 048
     Dates: start: 20171030, end: 20171211

REACTIONS (1)
  - Seizure [Recovered/Resolved]

NARRATIVE: CASE EVENT DATE: 20171213
